FAERS Safety Report 25810639 (Version 1)
Quarter: 2025Q3

REPORT INFORMATION
  Report Type: Spontaneous
  Country: EU (occurrence: EU)
  Receive Date: 20250917
  Receipt Date: 20250917
  Transmission Date: 20251021
  Serious: Yes (Other)
  Sender: ACCORD
  Company Number: None

PATIENT
  Sex: Female

DRUGS (7)
  1. FUROSEMIDE [Suspect]
     Active Substance: FUROSEMIDE
     Indication: Diuretic therapy
  2. URAPIDIL [Suspect]
     Active Substance: URAPIDIL
     Indication: Oedema
  3. METAMIZOLE [Suspect]
     Active Substance: METAMIZOLE
     Indication: Product used for unknown indication
  4. HYDROCHLOROTHIAZIDE [Suspect]
     Active Substance: HYDROCHLOROTHIAZIDE
     Indication: Product used for unknown indication
  5. DEXAMETHASONE\GENTAMICIN [Suspect]
     Active Substance: DEXAMETHASONE\GENTAMICIN
     Indication: Product used for unknown indication
  6. ALDACTONE [Suspect]
     Active Substance: SPIRONOLACTONE
     Indication: Product used for unknown indication
  7. TELMISARTAN [Suspect]
     Active Substance: TELMISARTAN
     Indication: Product used for unknown indication

REACTIONS (16)
  - Diarrhoea [Unknown]
  - Pruritus [Unknown]
  - Blood potassium decreased [Unknown]
  - Alopecia [Unknown]
  - Burning sensation [Unknown]
  - Dizziness [Unknown]
  - Fall [Unknown]
  - Confusional state [Unknown]
  - Immune system disorder [Unknown]
  - Back pain [Unknown]
  - Visual impairment [Unknown]
  - Asthenia [Unknown]
  - Muscle spasms [Unknown]
  - Syncope [Unknown]
  - Dyspnoea [Unknown]
  - Nasopharyngitis [Unknown]
